FAERS Safety Report 15829473 (Version 1)
Quarter: 2019Q1

REPORT INFORMATION
  Report Type: Spontaneous
  Country: US (occurrence: US)
  Receive Date: 20190115
  Receipt Date: 20190115
  Transmission Date: 20190417
  Serious: No
  Sender: FDA-Public Use
  Company Number: US-ALLERGAN-1844427US

PATIENT
  Sex: Female

DRUGS (3)
  1. OTC OINTMENT WITH MINERAL OIL AND VASELINE [Concomitant]
     Indication: DRY EYE
     Dosage: UNK UNK, QHS
     Route: 047
  2. RESTASIS [Suspect]
     Active Substance: CYCLOSPORINE
     Indication: DRY EYE
     Dosage: 2 GTT, 2-4 TIMES A DAY
     Route: 047
     Dates: start: 2008, end: 201808
  3. UNSPECIFIED SEVERAL OTHER MEDICATIONS [Concomitant]
     Indication: PRODUCT USED FOR UNKNOWN INDICATION
     Dosage: UNK
     Route: 065

REACTIONS (5)
  - Vision blurred [Not Recovered/Not Resolved]
  - Glaucoma [Not Recovered/Not Resolved]
  - Off label use [Unknown]
  - Vitreous floaters [Not Recovered/Not Resolved]
  - Macular degeneration [Not Recovered/Not Resolved]

NARRATIVE: CASE EVENT DATE: 2008
